FAERS Safety Report 15555317 (Version 1)
Quarter: 2018Q4

REPORT INFORMATION
  Report Type: Spontaneous
  Country: US (occurrence: US)
  Receive Date: 20181022
  Receipt Date: 20181022
  Transmission Date: 20190205
  Serious: No
  Sender: FDA-Public Use
  Company Number: None

PATIENT
  Age: 50 Year
  Sex: Female
  Weight: 82.55 kg

DRUGS (1)
  1. BENLYSTA [Suspect]
     Active Substance: BELIMUMAB
     Indication: SYSTEMIC LUPUS ERYTHEMATOSUS
     Dosage: INFUSE 831MG VIA INTRAVENO USLY OVER 1 HR ON DAY 1,?DAY 14, \T\ DAY 28 AS DIRECTED?
     Route: 042
     Dates: start: 201611

REACTIONS (1)
  - Cerebrovascular accident [None]
